FAERS Safety Report 9227791 (Version 1)
Quarter: 2013Q2

REPORT INFORMATION
  Report Type: Spontaneous
  Country: JP (occurrence: JP)
  Receive Date: 20130412
  Receipt Date: 20130412
  Transmission Date: 20140414
  Serious: Yes (Other)
  Sender: FDA-Public Use
  Company Number: JP-PFIZER INC-2013112310

PATIENT
  Age: 63 Year
  Sex: Female

DRUGS (1)
  1. SOLU-MEDROL [Suspect]
     Route: 042

REACTIONS (1)
  - Diabetes mellitus [Unknown]
